FAERS Safety Report 15597838 (Version 2)
Quarter: 2018Q4

REPORT INFORMATION
  Report Type: Spontaneous
  Country: US (occurrence: US)
  Receive Date: 20181108
  Receipt Date: 20181121
  Transmission Date: 20190205
  Serious: No
  Sender: FDA-Public Use
  Company Number: US-GLAXOSMITHKLINE-US2018196871

PATIENT
  Age: 26 Year
  Sex: Female

DRUGS (1)
  1. ARNUITY ELLIPTA [Suspect]
     Active Substance: FLUTICASONE FUROATE
     Indication: ASTHMA
     Dosage: 1 PUFF(S), 1D
     Route: 055
     Dates: start: 201804

REACTIONS (4)
  - Chest discomfort [Unknown]
  - Dyspnoea [Unknown]
  - Product dose omission [Unknown]
  - Product complaint [Unknown]

NARRATIVE: CASE EVENT DATE: 20181022
